FAERS Safety Report 8061957-3 (Version None)
Quarter: 2012Q1

REPORT INFORMATION
  Report Type: 
  Country: None (occurrence: None)
  Receive Date: 20120117
  Receipt Date: 20120109
  Transmission Date: 20120608
  Serious: Yes (Other)
  Sender: FDA-Public Use
  Company Number: 2012MA000395

PATIENT
  Sex: Female

DRUGS (1)
  1. METOCLOPRAMIDE [Suspect]
     Indication: PRODUCT USED FOR UNKNOWN INDICATION
     Dosage: ;UNK;UNK
     Dates: start: 20070201, end: 20090701

REACTIONS (4)
  - TARDIVE DYSKINESIA [None]
  - FAMILY STRESS [None]
  - EMOTIONAL DISORDER [None]
  - ECONOMIC PROBLEM [None]
